FAERS Safety Report 5739482-1 (Version None)
Quarter: 2008Q2

REPORT INFORMATION
  Report Type: 
  Country: None (occurrence: None)
  Receive Date: 20080515
  Receipt Date: 20080507
  Transmission Date: 20081010
  Serious: Yes (Hospitalization)
  Sender: FDA-Public Use
  Company Number: PHHY2008HR07245

PATIENT
  Age: 54 Year
  Sex: Male

DRUGS (11)
  1. CELLCEPT [Concomitant]
     Indication: IMMUNOSUPPRESSION
     Dosage: 2000G/DAY
     Dates: start: 20080216
  2. DECORTIN [Concomitant]
     Indication: IMMUNOSUPPRESSION
     Dosage: 20 MG/DAY
     Dates: start: 20080216
  3. FURSEMID [Concomitant]
     Indication: DIURETIC THERAPY
     Dosage: 40 MG/DAY
  4. PEPTORAN [Concomitant]
     Indication: DYSPEPSIA
     Dosage: 150 MG/DAY
  5. SINERSUL [Concomitant]
     Indication: PROPHYLAXIS URINARY TRACT INFECTION
     Dosage: 480 MG/DAY
  6. CORDIPIN [Concomitant]
     Indication: HYPERTENSION
     Dosage: 40 MG/DAY
  7. LESCOL XL [Concomitant]
     Indication: DYSLIPIDAEMIA
     Dosage: 80 MG/DAY
  8. ASPIRIN [Concomitant]
     Indication: THROMBOSIS PROPHYLAXIS
     Dosage: 100 MG/DAY
  9. PHEMITON [Concomitant]
     Indication: HEADACHE
  10. VITAMIN D3 [Concomitant]
  11. CYCLOSPORINE [Suspect]
     Indication: RENAL TRANSPLANT
     Dosage: 400 MG, UNK
     Dates: start: 20080216

REACTIONS (1)
  - DIABETES MELLITUS [None]
